FAERS Safety Report 4536919-0 (Version None)
Quarter: 2004Q4

REPORT INFORMATION
  Report Type: 
  Country: None (occurrence: None)
  Receive Date: 20041220
  Receipt Date: 20041209
  Transmission Date: 20050328
  Serious: Yes (Hospitalization, Other)
  Sender: FDA-Public Use
  Company Number: DEU-2004-0001081

PATIENT
  Age: 63 Year
  Sex: Male
  Weight: 76 kg

DRUGS (11)
  1. PALLADONE [Suspect]
     Indication: CANCER PAIN
     Dosage: 24 MG, BID, ORAL
     Route: 048
     Dates: start: 20040816, end: 20041013
  2. PALLADONE [Suspect]
     Indication: CANCER PAIN
     Dosage: PRN, ORAL
     Route: 048
     Dates: start: 20040816, end: 20041013
  3. GABAPENTIN [Concomitant]
  4. OBSTINOL MILD (PARAFFIN, LIQUID) [Concomitant]
  5. METAMIZOLE SODIUM [Concomitant]
  6. OMEPRAZOLE [Concomitant]
  7. KALINOR RETARD (POTASSIUM CHLORIDE) [Concomitant]
  8. GEMCITABINE (GEMCITABINE) [Concomitant]
  9. CISPLATIN [Concomitant]
  10. TAXOL [Concomitant]
  11. DURAGESIC [Concomitant]

REACTIONS (9)
  - ANGINA PECTORIS [None]
  - ANOREXIA [None]
  - ATRIAL FIBRILLATION [None]
  - BLOOD PRESSURE DECREASED [None]
  - BLOOD PRESSURE FLUCTUATION [None]
  - DIZZINESS [None]
  - FATIGUE [None]
  - HEART RATE INCREASED [None]
  - MALAISE [None]
